FAERS Safety Report 6497802-7 (Version None)
Quarter: 2009Q4

REPORT INFORMATION
  Report Type: 
  Country: None (occurrence: None)
  Receive Date: 20091215
  Receipt Date: 20091202
  Transmission Date: 20100525
  Serious: Yes (Hospitalization)
  Sender: FDA-Public Use
  Company Number: FR-ELI_LILLY_AND_COMPANY-FR200912000430

PATIENT
  Age: 86 Year
  Sex: Male

DRUGS (4)
  1. FORTEO [Suspect]
     Indication: OSTEOPOROSIS
     Dosage: 20 UG, DAILY (1/D)
     Route: 065
     Dates: start: 20090909, end: 20091116
  2. FORTEO [Suspect]
     Dosage: UNK, UNKNOWN
     Route: 065
     Dates: start: 20091120
  3. DETENSIEL [Concomitant]
     Indication: HYPERTENSION
     Dosage: 10 MG, DAILY (1/D)
     Route: 065
  4. CAPTOPRIL [Concomitant]
     Indication: HYPERTENSION
     Dosage: 25 MG, UNKNOWN
     Route: 065

REACTIONS (2)
  - BRONCHITIS [None]
  - SYNCOPE [None]
